FAERS Safety Report 16288748 (Version 1)
Quarter: 2019Q2

REPORT INFORMATION
  Report Type: Spontaneous
  Country: KR (occurrence: KR)
  Receive Date: 20190509
  Receipt Date: 20190509
  Transmission Date: 20190711
  Serious: Yes (Other)
  Sender: FDA-Public Use
  Company Number: KR-ROCHE-2315112

PATIENT
  Age: 38 Year
  Sex: Female
  Weight: 60.15 kg

DRUGS (7)
  1. DOCETAXEL. [Suspect]
     Active Substance: DOCETAXEL
     Dosage: SUBSEQUENT DOSE WAS RECEIVED ON 19/JUL/2018, 09/AUG/2018, 30/AUG/2018, 20/SEP/2018, 11/OCT/2018, 01/
     Route: 065
     Dates: start: 20180628
  2. PERJETA [Suspect]
     Active Substance: PERTUZUMAB
     Indication: BREAST CANCER
     Route: 065
     Dates: start: 20180607
  3. PERJETA [Suspect]
     Active Substance: PERTUZUMAB
     Dosage: SUBSEQUENT DOSE WAS RECEIVED ON 19/JUL/2018, 09/AUG/2018, 30/AUG/2018, 20/SEP/2018, 11/OCT/2018, 01/
     Route: 065
     Dates: start: 20180628
  4. DOCETAXEL. [Suspect]
     Active Substance: DOCETAXEL
     Indication: BREAST CANCER
     Route: 065
     Dates: start: 20180607
  5. HERCEPTIN [Suspect]
     Active Substance: TRASTUZUMAB
     Dosage: SUBSEQUENT DOSE WAS RECEIVED ON 19/JUL/2018, 09/AUG/2018, 30/AUG/2018, 20/SEP/2018, 11/OCT/2018, 01/
     Route: 042
     Dates: start: 20180628
  6. MEGACE [Concomitant]
     Active Substance: MEGESTROL ACETATE
     Route: 048
     Dates: start: 20180612, end: 20180719
  7. HERCEPTIN [Suspect]
     Active Substance: TRASTUZUMAB
     Indication: BREAST CANCER
     Route: 042
     Dates: start: 20180607

REACTIONS (3)
  - Cancer pain [Recovered/Resolved]
  - Neutrophil count decreased [Recovered/Resolved]
  - Decreased appetite [Recovered/Resolved]

NARRATIVE: CASE EVENT DATE: 20180608
